FAERS Safety Report 10245914 (Version 3)
Quarter: 2014Q3

REPORT INFORMATION
  Report Type: Spontaneous
  Country: MX (occurrence: MX)
  Receive Date: 20140619
  Receipt Date: 20140703
  Transmission Date: 20150326
  Serious: Yes (Death, Hospitalization)
  Sender: FDA-Public Use
  Company Number: MX-BRISTOL-MYERS SQUIBB COMPANY-20766192

PATIENT
  Age: 60 Year

DRUGS (1)
  1. SPRYCEL [Suspect]
     Active Substance: DASATINIB
     Indication: CHRONIC MYELOID LEUKAEMIA
     Dosage: RESTARTED WITH 50MG
     Route: 048
     Dates: start: 201402, end: 201404

REACTIONS (3)
  - Pancytopenia [Fatal]
  - Pneumonia [Recovering/Resolving]
  - Pleural effusion [Fatal]

NARRATIVE: CASE EVENT DATE: 201403
